FAERS Safety Report 10190508 (Version 2)
Quarter: 2015Q2

REPORT INFORMATION
  Report Type: Spontaneous
  Country: US (occurrence: US)
  Receive Date: 20140522
  Receipt Date: 20150520
  Transmission Date: 20150821
  Serious: No
  Sender: FDA-Public Use
  Company Number: US-SA-2014SA052027

PATIENT
  Age: 63 Year
  Sex: Male

DRUGS (4)
  1. ELOXATIN [Suspect]
     Active Substance: OXALIPLATIN
     Indication: CHOLANGIOCARCINOMA
     Route: 065
     Dates: start: 20140103, end: 20140414
  2. EPIRUBICIN [Concomitant]
     Active Substance: EPIRUBICIN
     Indication: CHOLANGIOCARCINOMA
     Dosage: FOR 3 WEEK
     Dates: start: 20140103
  3. FLUOROURACIL. [Concomitant]
     Active Substance: FLUOROURACIL
     Indication: CHOLANGIOCARCINOMA
     Dates: start: 20140103
  4. NORMAL SALINE [Concomitant]
     Active Substance: SODIUM CHLORIDE

REACTIONS (1)
  - Wrong technique in drug usage process [Unknown]

NARRATIVE: CASE EVENT DATE: 20140414
